FAERS Safety Report 7817068-2 (Version None)
Quarter: 2011Q4

REPORT INFORMATION
  Report Type: 
  Country: None (occurrence: None)
  Receive Date: 20111017
  Receipt Date: 20111010
  Transmission Date: 20120403
  Serious: Yes (Hospitalization)
  Sender: FDA-Public Use
  Company Number: PHEH2011US06493

PATIENT
  Age: 5 Year
  Sex: Male
  Weight: 16.327 kg

DRUGS (2)
  1. TOBRAMYCIN [Suspect]
     Dosage: 300 MG, BID FOR 14 DAYS
     Dates: start: 20110708
  2. CEFTAZIDIME [Concomitant]

REACTIONS (1)
  - LUNG INFECTION [None]
